FAERS Safety Report 8908808 (Version 2)
Quarter: 2013Q4

REPORT INFORMATION
  Report Type: Spontaneous
  Country: GB (occurrence: GB)
  Receive Date: 20121114
  Receipt Date: 20131004
  Transmission Date: 20140711
  Serious: Yes (Disabling)
  Sender: FDA-Public Use
  Company Number: GB-ASTRAZENECA-2012SE84264

PATIENT
  Age: 31411 Day
  Sex: Female
  Weight: 57 kg

DRUGS (6)
  1. ROSUVASTATIN [Suspect]
     Indication: HYPERLIPIDAEMIA
     Route: 048
     Dates: start: 20040623, end: 20121017
  2. ATENOLOL [Concomitant]
  3. BENDROFLUMETHIAZIDE [Concomitant]
  4. ENALAPRIL [Concomitant]
  5. LATANOPROST [Concomitant]
  6. SENNA [Concomitant]

REACTIONS (5)
  - Pulmonary fibrosis [Not Recovered/Not Resolved]
  - Cough [Unknown]
  - Clubbing [Unknown]
  - Rales [Not Recovered/Not Resolved]
  - Interstitial lung disease [Not Recovered/Not Resolved]
